FAERS Safety Report 9346787 (Version 1)
Quarter: 2013Q2

REPORT INFORMATION
  Report Type: Spontaneous
  Country: GB (occurrence: GB)
  Receive Date: 20130613
  Receipt Date: 20130613
  Transmission Date: 20140414
  Serious: Yes (Other)
  Sender: FDA-Public Use
  Company Number: GB-CELGENEUS-167-21880-13054846

PATIENT
  Sex: 0

DRUGS (2)
  1. REVLIMID [Suspect]
     Indication: PLASMA CELL MYELOMA
     Route: 048
     Dates: start: 20100406, end: 20120430
  2. DEXAMETHASONE [Concomitant]
     Indication: PLASMA CELL MYELOMA
     Route: 065

REACTIONS (6)
  - Rectal cancer [Unknown]
  - Embolism venous [Unknown]
  - Neutropenia [Unknown]
  - Thrombocytopenia [Unknown]
  - Adverse drug reaction [Unknown]
  - Constipation [Unknown]
